FAERS Safety Report 8368807 (Version 2)
Quarter: 2012Q4

REPORT INFORMATION
  Report Type: 
  Country: BR (occurrence: BR)
  Receive Date: 20120131
  Receipt Date: 20120902
  Transmission Date: 20130627
  Serious: Yes (Hospitalization, Other)
  Sender: FDA-Public Use
  Company Number: BR-AMGEN-BRASP2012004195

PATIENT
  Age: 54 Year
  Sex: Female
  Weight: 72 kg

DRUGS (8)
  1. ENBREL [Suspect]
     Indication: RHEUMATOID ARTHRITIS
     Dosage: UNK
     Dates: start: 200909, end: 201109
  2. ENBREL [Suspect]
     Dosage: 50 mg, qwk
     Route: 058
     Dates: start: 201109, end: 201111
  3. AMLODIPINE W/ OLMESARTAN MEDOXOMIL [Concomitant]
     Dosage: 40 mg, UNK
  4. VYTORIN [Concomitant]
     Dosage: UNK
  5. BENICAR HCT [Concomitant]
     Dosage: 40 mg, UNK
  6. FOLIC ACID [Concomitant]
     Indication: RHEUMATOID ARTHRITIS
     Dosage: UNK
  7. PRELONE                            /00016201/ [Concomitant]
     Indication: ARTHRITIS
     Dosage: UNK
  8. TECNOMET                           /00113801/ [Concomitant]
     Indication: ARTHRITIS
     Dosage: UNK

REACTIONS (4)
  - Rheumatoid arthritis [Unknown]
  - Swelling face [Recovered/Resolved]
  - Arthralgia [Unknown]
  - Injection site pain [Unknown]
